FAERS Safety Report 7635473-4 (Version None)
Quarter: 2011Q3

REPORT INFORMATION
  Report Type: 
  Country: None (occurrence: None)
  Receive Date: 20110726
  Receipt Date: 20110726
  Transmission Date: 20111222
  Serious: No
  Sender: FDA-Public Use
  Company Number: None

PATIENT
  Sex: Female
  Weight: 111.13 kg

DRUGS (1)
  1. METFORMIN HCL [Suspect]
     Indication: DIABETES MELLITUS
     Dosage: 1
     Route: 048
     Dates: start: 20100802, end: 20100806

REACTIONS (7)
  - MALAISE [None]
  - TREMOR [None]
  - PRODUCT SUBSTITUTION ISSUE [None]
  - ASTHENIA [None]
  - PALPITATIONS [None]
  - CONFUSIONAL STATE [None]
  - FEELING ABNORMAL [None]
